FAERS Safety Report 22003084 (Version 1)
Quarter: 2023Q1

REPORT INFORMATION
  Report Type: Spontaneous
  Country: FR (occurrence: FR)
  Receive Date: 20230217
  Receipt Date: 20230217
  Transmission Date: 20230418
  Serious: Yes (Other)
  Sender: FDA-Public Use
  Company Number: FR-ELI_LILLY_AND_COMPANY-FR202301005411

PATIENT
  Age: 44 Year
  Sex: Male

DRUGS (3)
  1. FLUOXETINE [Suspect]
     Active Substance: FLUOXETINE HYDROCHLORIDE
     Indication: Anxiety disorder
     Dosage: 20 MG, UNKNOWN
     Route: 065
  2. PROZAC [Suspect]
     Active Substance: FLUOXETINE HYDROCHLORIDE
     Indication: Anxiety
     Dosage: 30 MG, DAILY
     Route: 065
     Dates: start: 202004
  3. EFFEXOR [Concomitant]
     Active Substance: VENLAFAXINE HYDROCHLORIDE
     Indication: Product used for unknown indication
     Dosage: UNK
     Route: 065
     Dates: start: 200910

REACTIONS (11)
  - Oesophageal ulcer [Unknown]
  - Akathisia [Unknown]
  - Burn oesophageal [Unknown]
  - Electric shock [Unknown]
  - Headache [Unknown]
  - Insomnia [Unknown]
  - Off label use [Not Recovered/Not Resolved]
  - Restless legs syndrome [Unknown]
  - Serum serotonin increased [Unknown]
  - Tinnitus [Unknown]
  - Withdrawal syndrome [Unknown]

NARRATIVE: CASE EVENT DATE: 20200401
